FAERS Safety Report 5801579-5 (Version None)
Quarter: 2008Q3

REPORT INFORMATION
  Report Type: 
  Country: None (occurrence: None)
  Receive Date: 20080703
  Receipt Date: 20080703
  Transmission Date: 20090109
  Serious: Yes (Life-Threatening)
  Sender: FDA-Public Use
  Company Number: None

PATIENT
  Age: 70 Year
  Sex: Male
  Weight: 122 kg

DRUGS (2)
  1. ACETADOTE [Suspect]
     Indication: NEPHROPATHY TOXIC
     Dosage: 18 G ONCE IV
     Route: 042
     Dates: start: 20080609, end: 20080609
  2. ACETADOTE [Suspect]
     Indication: PROPHYLAXIS
     Dosage: 18 G ONCE IV
     Route: 042
     Dates: start: 20080609, end: 20080609

REACTIONS (5)
  - DYSPNOEA [None]
  - ERYTHEMA [None]
  - FLUSHING [None]
  - HYPOTENSION [None]
  - INFUSION RELATED REACTION [None]
